FAERS Safety Report 10172224 (Version 2)
Quarter: 2014Q2

REPORT INFORMATION
  Report Type: Report from Study
  Country: US (occurrence: US)
  Receive Date: 20140515
  Receipt Date: 20140515
  Transmission Date: 20141212
  Serious: Yes (Life-Threatening, Hospitalization, Other)
  Sender: FDA-Public Use
  Company Number: US-ACTELION-A-US2006-13475

PATIENT
  Age: 53 Year
  Sex: Female

DRUGS (1)
  1. TRACLEER [Suspect]
     Indication: PULMONARY ARTERIAL HYPERTENSION
     Route: 048
     Dates: start: 20020107

REACTIONS (9)
  - Bladder cancer recurrent [Unknown]
  - Bladder neoplasm [Unknown]
  - Anaemia [Unknown]
  - Blood count abnormal [Unknown]
  - Transfusion [Unknown]
  - Asthenia [Unknown]
  - Cyst removal [Unknown]
  - Renal cyst [Unknown]
  - Bladder neoplasm surgery [Unknown]
